FAERS Safety Report 9907040 (Version 2)
Quarter: 2014Q1

REPORT INFORMATION
  Report Type: Spontaneous
  Country: US (occurrence: US)
  Receive Date: 20140218
  Receipt Date: 20140218
  Transmission Date: 20141002
  Serious: No
  Sender: FDA-Public Use
  Company Number: US-GILEAD-2012-0054024

PATIENT
  Age: 75 Year
  Sex: Male
  Weight: 95.24 kg

DRUGS (30)
  1. LETAIRIS [Suspect]
     Indication: PULMONARY HYPERTENSION
     Dosage: 10 MG, UNK
     Route: 048
     Dates: start: 20120323, end: 20120403
  2. SPIRIVA [Concomitant]
  3. KLOR-CON [Concomitant]
  4. DEMADEX                            /01036501/ [Concomitant]
  5. FLOVENT HFA [Concomitant]
  6. CARAFATE [Concomitant]
  7. LANTUS                             /01483501/ [Concomitant]
  8. NITROSTAT [Concomitant]
  9. NOVOLOG [Concomitant]
  10. PRILOSEC                           /00661201/ [Concomitant]
  11. PROAIR HFA [Concomitant]
  12. COUMADINE [Concomitant]
  13. LOTRISONE [Concomitant]
  14. KENALOG [Concomitant]
  15. LIPITOR [Concomitant]
  16. ASPIRIN [Concomitant]
  17. LANOXIN [Concomitant]
  18. NEURONTIN [Concomitant]
  19. AMARYL [Concomitant]
  20. IMDUR [Concomitant]
  21. LOPRESSOR [Concomitant]
  22. MULTIPLE VITAMINS [Concomitant]
  23. DIOVAN [Concomitant]
  24. LOPID [Concomitant]
  25. PREGABALIN [Concomitant]
  26. TADALAFIL [Concomitant]
  27. TAMSULOSIN [Concomitant]
  28. VITAMIN D NOS [Concomitant]
  29. DEXILANT [Concomitant]
  30. OXYGEN [Concomitant]

REACTIONS (5)
  - Vision blurred [Recovered/Resolved]
  - Malaise [Recovered/Resolved]
  - Wheezing [Unknown]
  - Fatigue [Unknown]
  - Headache [Unknown]
